FAERS Safety Report 17347570 (Version 1)
Quarter: 2020Q1

REPORT INFORMATION
  Report Type: Spontaneous
  Country: US (occurrence: US)
  Receive Date: 20200130
  Receipt Date: 20200130
  Transmission Date: 20200409
  Serious: No
  Sender: FDA-Public Use
  Company Number: US-VERTEX PHARMACEUTICALS-2018-006524

PATIENT
  Sex: Male
  Weight: 69 kg

DRUGS (1)
  1. SYMDEKO [Suspect]
     Active Substance: IVACAFTOR\TEZACAFTOR
     Indication: CYSTIC FIBROSIS
     Dosage: 100MG TEZACAFTOR/150MG IVACAFTOR AM; 150MG IVACAFTOR PM
     Route: 048
     Dates: start: 20180825

REACTIONS (7)
  - Decreased appetite [Recovered/Resolved]
  - Sinus congestion [Recovered/Resolved]
  - Cough [Not Recovered/Not Resolved]
  - Pulmonary function test decreased [Recovering/Resolving]
  - Nausea [Unknown]
  - Vision blurred [Not Recovered/Not Resolved]
  - Weight decreased [Recovering/Resolving]

NARRATIVE: CASE EVENT DATE: 2018
